FAERS Safety Report 25319556 (Version 1)
Quarter: 2025Q2

REPORT INFORMATION
  Report Type: Spontaneous
  Country: IN (occurrence: IN)
  Receive Date: 20250515
  Receipt Date: 20250515
  Transmission Date: 20250717
  Serious: Yes (Hospitalization)
  Sender: PFIZER
  Company Number: IN-PFIZER INC-PV202500014472

PATIENT
  Age: 49 Year
  Sex: Female

DRUGS (2)
  1. LORLATINIB [Suspect]
     Active Substance: LORLATINIB
     Indication: Lung adenocarcinoma
     Dosage: 100 MG, ALTERNATE DAY (100 MG ONCE DAILY, ALRENATE DAYS FOR 3 MONTHS)
     Route: 048
  2. LORLATINIB [Suspect]
     Active Substance: LORLATINIB
     Dates: start: 20231223

REACTIONS (3)
  - Pleural effusion [Unknown]
  - Dyspnoea [Unknown]
  - Off label use [Unknown]
